FAERS Safety Report 25063419 (Version 1)
Quarter: 2025Q1

REPORT INFORMATION
  Report Type: Spontaneous
  Country: AU (occurrence: AU)
  Receive Date: 20250311
  Receipt Date: 20250311
  Transmission Date: 20250409
  Serious: Yes (Other)
  Sender: PFIZER
  Company Number: AU-PFIZER INC-PV202500026948

PATIENT
  Age: 42 Year
  Sex: Male
  Weight: 110 kg

DRUGS (4)
  1. METHOTREXATE SODIUM [Suspect]
     Active Substance: METHOTREXATE SODIUM
     Indication: Cardiac sarcoidosis
     Dosage: 20 MG, WEEKLY
  2. METHOTREXATE SODIUM [Suspect]
     Active Substance: METHOTREXATE SODIUM
     Indication: Pulmonary sarcoidosis
  3. PREDNISOLONE [Concomitant]
     Active Substance: PREDNISOLONE
     Indication: Cardiac sarcoidosis
     Dosage: 60 MG, DAILY
  4. PREDNISOLONE [Concomitant]
     Active Substance: PREDNISOLONE
     Indication: Pulmonary sarcoidosis
     Dosage: 5 MG, 1X/DAY

REACTIONS (4)
  - Cardiac sarcoidosis [Unknown]
  - Condition aggravated [Unknown]
  - Myocardial fibrosis [Unknown]
  - Off label use [Unknown]

NARRATIVE: CASE EVENT DATE: 20240801
